FAERS Safety Report 16868120 (Version 2)
Quarter: 2019Q4

REPORT INFORMATION
  Report Type: Spontaneous
  Country: US (occurrence: US)
  Receive Date: 20190930
  Receipt Date: 20191105
  Transmission Date: 20200122
  Serious: No
  Sender: FDA-Public Use
  Company Number: US-PFIZER INC-2019415465

PATIENT
  Age: 77 Year
  Sex: Female
  Weight: 77.11 kg

DRUGS (9)
  1. ULTRAM [Concomitant]
     Active Substance: TRAMADOL HYDROCHLORIDE
     Dosage: 3 DF, 2X/DAY
     Dates: start: 1987
  2. ELIQUIS [Concomitant]
     Active Substance: APIXABAN
     Dosage: 1 DF, 2X/DAY (1 BID)
  3. TOPROL XL [Concomitant]
     Active Substance: METOPROLOL SUCCINATE
     Dosage: 300 MG, 2X/DAY (3 BD /100 MG)
     Dates: start: 1987
  4. ELIQUIS [Concomitant]
     Active Substance: APIXABAN
     Indication: ANTICOAGULANT THERAPY
     Dosage: 5 MG, DAILY
     Dates: start: 2017
  5. BACLOFEN. [Concomitant]
     Active Substance: BACLOFEN
     Dosage: 20 MG, 2X/DAY
     Dates: start: 1987
  6. NEURONTIN [Concomitant]
     Active Substance: GABAPENTIN
     Dosage: 1800 MG, 2X/DAY (3 BID /600MG)
     Dates: start: 1987
  7. ADVIL [Suspect]
     Active Substance: IBUPROFEN
     Indication: BACK PAIN
     Dosage: 400 MG, 1X/DAY, [2 200 MG TABLETS ONCE PER DAY]
     Dates: end: 20190924
  8. XANAX [Concomitant]
     Active Substance: ALPRAZOLAM
     Dosage: 2 DF, UNK (2 BID / 05)
  9. BOTULINUM TOXIN TYPE B [Concomitant]
     Active Substance: RIMABOTULINUMTOXINB
     Dosage: UNK (4K UNITS INJECTION EVERY 12 WKS)

REACTIONS (1)
  - Blood blister [Recovered/Resolved]

NARRATIVE: CASE EVENT DATE: 201906
